FAERS Safety Report 9993301 (Version 1)
Quarter: 2014Q1

REPORT INFORMATION
  Report Type: Spontaneous
  Country: US (occurrence: US)
  Receive Date: 20140310
  Receipt Date: 20140310
  Transmission Date: 20141002
  Serious: No
  Sender: FDA-Public Use
  Company Number: US-BAUSCH-BL-2013-004474

PATIENT
  Age: 62 Year
  Sex: Female

DRUGS (4)
  1. DESMOPRESSIN ACETATE NASAL SOLUTION 0.01% [Suspect]
     Indication: DIABETES INSIPIDUS
     Dosage: 60 DOSAGE FORMS; ONCE DAILY; RIGHT NARE
     Route: 045
  2. DESMOPRESSIN ACETATE NASAL SOLUTION 0.01% [Suspect]
     Dosage: 60 DOSAGE FORMS; ONCE DAILY; LEFT NARE
     Route: 045
  3. DESMOPRESSIN ACETATE NASAL SOLUTION 0.01% [Suspect]
     Dosage: 60 DOSAGE FORMS; ONCE DAILY; RIGHT NARE
     Route: 045
  4. DESMOPRESSIN ACETATE NASAL SOLUTION 0.01% [Suspect]
     Dosage: 60 DOSAGE FORMS; ONCE DAILY; LEFT NARE
     Route: 045

REACTIONS (2)
  - Incorrect dose administered [Not Recovered/Not Resolved]
  - Drug effect decreased [Not Recovered/Not Resolved]
